FAERS Safety Report 9403425 (Version 1)
Quarter: 2013Q3

REPORT INFORMATION
  Report Type: Not Available
  Country: GB (occurrence: GB)
  Receive Date: 20130716
  Receipt Date: 20130716
  Transmission Date: 20140515
  Serious: Yes (Disabling, Other)
  Sender: FDA-Public Use
  Company Number: GB-PURDUE-GBR-2013-0014921

PATIENT
  Sex: Male
  Weight: 95.25 kg

DRUGS (7)
  1. MORPHINE SULFATE [Suspect]
     Indication: FACIAL PAIN
     Dosage: 40 MG, UNK
     Route: 048
     Dates: end: 20130301
  2. MORPHINE SULFATE [Suspect]
     Dosage: 20 MG, UNK
     Route: 048
     Dates: start: 20061201
  3. AMITRIPTYLINE [Concomitant]
     Dosage: 25 MG, DAILY
  4. CODEINE [Concomitant]
  5. GABAPENTIN [Concomitant]
     Dosage: 2100 MG, DAILY
  6. MIRTAZAPINE [Concomitant]
     Dosage: 45 MG, DAILY
  7. TOPIRAMATE [Concomitant]
     Dosage: 100 MG, DAILY

REACTIONS (4)
  - Drug dependence [Not Recovered/Not Resolved]
  - Food craving [Not Recovered/Not Resolved]
  - Headache [Not Recovered/Not Resolved]
  - Hyperaesthesia [Not Recovered/Not Resolved]
